FAERS Safety Report 12784780 (Version 1)
Quarter: 2016Q3

REPORT INFORMATION
  Report Type: Spontaneous
  Country: US (occurrence: US)
  Receive Date: 20160927
  Receipt Date: 20160927
  Transmission Date: 20161109
  Serious: Yes (Other)
  Sender: FDA-Public Use
  Company Number: US-LPDUSPRD-20160817

PATIENT
  Age: 13 Year
  Sex: Female

DRUGS (9)
  1. PREDNISONE. [Suspect]
     Active Substance: PREDNISONE
     Dosage: DOSE NOT PROVIDED
     Route: 065
  2. LEUCOVORIN CALCIUM INJECTION (0517-8605-25) [Suspect]
     Active Substance: LEUCOVORIN CALCIUM
     Dosage: DOSE NOT PROVIDED
     Route: 065
  3. METHOTREXATE. [Suspect]
     Active Substance: METHOTREXATE
     Dosage: DOSE NOT PROVIDED
     Route: 065
  4. DEXAMETHASONE SODIUM PHOSPHATE INJECTION, USP (4901-25) [Suspect]
     Active Substance: DEXAMETHASONE SODIUM PHOSPHATE
     Dosage: DOSE NOT PROVIDED
     Route: 065
  5. DOXORUBICIN [Suspect]
     Active Substance: DOXORUBICIN
     Dosage: DOSE NOT PROVIDED
     Route: 065
  6. DAUNORUBICIN [Suspect]
     Active Substance: DAUNORUBICIN
     Dosage: DOSE NOT PROVIDED
     Route: 065
  7. PEGASPARGASE [Suspect]
     Active Substance: PEGASPARGASE
     Dosage: DOSE NOT PROVIDED
     Route: 065
  8. VINCRISTINE [Suspect]
     Active Substance: VINCRISTINE
     Dosage: DOSE NOT PROVIDED
     Route: 065
  9. CYCLOPHOSPHAMIDE. [Suspect]
     Active Substance: CYCLOPHOSPHAMIDE
     Dosage: DOSE NOT PROVIDED
     Route: 065

REACTIONS (1)
  - Osteonecrosis [Unknown]
